FAERS Safety Report 8910961 (Version 2)
Quarter: 2013Q1

REPORT INFORMATION
  Report Type: Spontaneous
  Country: CA (occurrence: CA)
  Receive Date: 20121116
  Receipt Date: 20130128
  Transmission Date: 20140127
  Serious: Yes (Hospitalization)
  Sender: FDA-Public Use
  Company Number: CA-ELI_LILLY_AND_COMPANY-CA201211002781

PATIENT
  Age: 44 Year
  Sex: Male

DRUGS (18)
  1. FORTEO [Suspect]
     Indication: OSTEOPOROSIS
     Dosage: 20 UG, QD
     Route: 058
     Dates: start: 20110929, end: 20121021
  2. FORTEO [Suspect]
     Dosage: 20 UG, QD
     Route: 058
     Dates: start: 20121024
  3. LOPERAMIDE [Concomitant]
     Dosage: UNK, UNKNOWN
     Route: 065
  4. PROGRAF [Concomitant]
     Dosage: UNK, UNKNOWN
     Route: 065
  5. COVERSYL [Concomitant]
     Dosage: UNK, UNKNOWN
     Route: 065
  6. HUMALOG [Concomitant]
     Dosage: UNK, UNKNOWN
     Route: 065
  7. LANTUS [Concomitant]
     Dosage: UNK, UNKNOWN
     Route: 065
  8. ELAVIL [Concomitant]
     Dosage: UNK, UNKNOWN
     Route: 065
  9. EFFEXOR [Concomitant]
     Dosage: UNK, UNKNOWN
     Route: 065
  10. RITALIN [Concomitant]
     Dosage: UNK, UNKNOWN
     Route: 065
  11. CALCIUM [Concomitant]
     Dosage: UNK, UNKNOWN
     Route: 065
  12. D-TABS [Concomitant]
     Dosage: UNK, UNKNOWN
     Route: 065
  13. PREDNISONE [Concomitant]
     Dosage: UNK, UNKNOWN
     Route: 065
  14. ENTOCORT [Concomitant]
     Dosage: UNK, UNKNOWN
     Route: 065
  15. COTAZYM                            /00014701/ [Concomitant]
     Dosage: UNK, UNKNOWN
     Route: 065
  16. LASIX [Concomitant]
  17. ALDACTONE [Concomitant]
  18. CELLCEPT [Concomitant]

REACTIONS (2)
  - Cellulitis [Recovered/Resolved]
  - Beta haemolytic streptococcal infection [Recovered/Resolved]
